FAERS Safety Report 25186130 (Version 2)
Quarter: 2025Q2

REPORT INFORMATION
  Report Type: Spontaneous
  Country: US (occurrence: US)
  Receive Date: 20250410
  Receipt Date: 20250520
  Transmission Date: 20250717
  Serious: Yes (Hospitalization, Other)
  Sender: SANOFI AVENTIS
  Company Number: US-SA-2025SA102463

PATIENT
  Age: 67 Year
  Sex: Male

DRUGS (3)
  1. DUPIXENT [Suspect]
     Active Substance: DUPILUMAB
     Indication: Chronic obstructive pulmonary disease
     Dosage: 300 MG, QOW
     Route: 058
     Dates: start: 202502
  2. LASIX [Suspect]
     Active Substance: FUROSEMIDE
  3. LASIX [Suspect]
     Active Substance: FUROSEMIDE

REACTIONS (4)
  - Femoral neck fracture [Unknown]
  - Dyspnoea [Unknown]
  - Fall [Unknown]
  - Weight decreased [Unknown]

NARRATIVE: CASE EVENT DATE: 20250101
